FAERS Safety Report 24350988 (Version 1)
Quarter: 2024Q3

REPORT INFORMATION
  Report Type: Spontaneous
  Country: US (occurrence: None)
  Receive Date: 20240920
  Receipt Date: 20240920
  Transmission Date: 20241017
  Serious: Yes (Other)
  Sender: Public
  Company Number: None

PATIENT
  Age: 55 Year
  Sex: Female
  Weight: 78 kg

DRUGS (2)
  1. LUMASON [Suspect]
     Active Substance: SULFUR HEXAFLUORIDE
     Indication: Echocardiogram
     Dosage: 2 ML INTRAVENOUS
     Route: 042
     Dates: start: 20240826, end: 20240826
  2. LUMASON [Suspect]
     Active Substance: SULFUR HEXAFLUORIDE
     Indication: Scan with contrast

REACTIONS (5)
  - Dyspnoea [None]
  - Bronchospasm [None]
  - Chest discomfort [None]
  - Nausea [None]
  - Hypoxia [None]

NARRATIVE: CASE EVENT DATE: 20240826
